FAERS Safety Report 7297974-0 (Version None)
Quarter: 2011Q1

REPORT INFORMATION
  Report Type: 
  Country: None (occurrence: None)
  Receive Date: 20110217
  Receipt Date: 20110211
  Transmission Date: 20110831
  Serious: Yes (Hospitalization)
  Sender: FDA-Public Use
  Company Number: SE-JNJFOC-20110107263

PATIENT
  Age: 63 Year
  Sex: Male

DRUGS (4)
  1. HALDOL [Suspect]
     Indication: DELIRIUM
     Dosage: 5 MG/ML
     Route: 042
  2. DIAZEPAM [Concomitant]
     Route: 042
  3. OMEPRAZOLE [Concomitant]
     Route: 065
  4. RINGER-ACETAT [Concomitant]
     Route: 065

REACTIONS (2)
  - INCORRECT ROUTE OF DRUG ADMINISTRATION [None]
  - SEDATION [None]
